FAERS Safety Report 18236420 (Version 3)
Quarter: 2020Q3

REPORT INFORMATION
  Report Type: Spontaneous
  Country: JP (occurrence: JP)
  Receive Date: 20200907
  Receipt Date: 20200914
  Transmission Date: 20201103
  Serious: Yes (Hospitalization)
  Sender: FDA-Public Use
  Company Number: JP-ABBVIE-20K-087-3552448-00

PATIENT
  Age: 69 Year
  Sex: Male

DRUGS (1)
  1. MAVIRET [Suspect]
     Active Substance: GLECAPREVIR\PIBRENTASVIR
     Indication: PRODUCT USED FOR UNKNOWN INDICATION
     Route: 048
     Dates: start: 20200617, end: 20200909

REACTIONS (1)
  - Incarcerated hernia [Recovered/Resolved]

NARRATIVE: CASE EVENT DATE: 2020
